FAERS Safety Report 8346725-7 (Version None)
Quarter: 2012Q2

REPORT INFORMATION
  Report Type: 
  Country: None (occurrence: None)
  Receive Date: 20120508
  Receipt Date: 20120508
  Transmission Date: 20120825
  Serious: Yes (Hospitalization)
  Sender: FDA-Public Use
  Company Number: None

PATIENT
  Sex: Female
  Weight: 74.9 kg

DRUGS (13)
  1. CLARITIN [Concomitant]
  2. TAXOTERE [Suspect]
     Indication: SARCOMA
     Dosage: TAXOTERE 74MG IV C1D1
     Route: 042
     Dates: start: 20120207
  3. TAXOTERE [Suspect]
     Indication: SARCOMA
     Dosage: TAXOTERE 74MG IV C1D1
     Route: 042
     Dates: start: 20120124
  4. CLONIDINE HCL [Concomitant]
  5. ALIMTA [Suspect]
     Indication: SARCOMA
     Dosage: ALIMTA 920MG IV C1D1
     Route: 042
     Dates: start: 20120207
  6. ALIMTA [Suspect]
     Indication: SARCOMA
     Dosage: ALIMTA 920MG IV C1D1
     Route: 042
     Dates: start: 20120124
  7. TAXOTERE [Suspect]
  8. OXYCODONE HCL [Concomitant]
  9. MIRALAX [Concomitant]
  10. FLUTICACONE PROPIONATE [Concomitant]
  11. LISINOPRIL [Concomitant]
  12. OXYCONTIN [Concomitant]
  13. COMPAZINE [Concomitant]

REACTIONS (7)
  - DYSPNOEA [None]
  - MALNUTRITION [None]
  - ATRIAL FIBRILLATION [None]
  - NAUSEA [None]
  - TACHYCARDIA [None]
  - DISEASE PROGRESSION [None]
  - PNEUMONIA [None]
